FAERS Safety Report 5750507-X (Version None)
Quarter: 2008Q2

REPORT INFORMATION
  Report Type: 
  Country: None (occurrence: None)
  Receive Date: 20080523
  Receipt Date: 20080523
  Transmission Date: 20081010
  Serious: Yes (Other)
  Sender: FDA-Public Use
  Company Number: None

PATIENT
  Sex: Female
  Weight: 54.4316 kg

DRUGS (3)
  1. ACTIQ [Suspect]
     Indication: EHLERS-DANLOS SYNDROME
     Dosage: SEE PRIOR INFO 4-6 DOSES/DAY SEE ABOVE DAILY
  2. ACTIQ [Suspect]
     Indication: PANCREATITIS CHRONIC
     Dosage: SEE PRIOR INFO 4-6 DOSES/DAY SEE ABOVE DAILY
  3. ACTIQ [Suspect]

REACTIONS (2)
  - DRUG INEFFECTIVE [None]
  - PHARMACEUTICAL PRODUCT COMPLAINT [None]
